FAERS Safety Report 15771038 (Version 1)
Quarter: 2018Q4

REPORT INFORMATION
  Report Type: Spontaneous
  Country: US (occurrence: US)
  Receive Date: 20181228
  Receipt Date: 20181228
  Transmission Date: 20190205
  Serious: Yes (Other)
  Sender: FDA-Public Use
  Company Number: US-PFIZER INC-2018532328

PATIENT
  Sex: Male

DRUGS (2)
  1. CARBOPLATIN. [Suspect]
     Active Substance: CARBOPLATIN
     Indication: BLADDER TRANSITIONAL CELL CARCINOMA
     Dosage: UNK
     Dates: end: 20181025
  2. GEMZAR [Suspect]
     Active Substance: GEMCITABINE HYDROCHLORIDE
     Indication: BLADDER TRANSITIONAL CELL CARCINOMA
     Dosage: UNK
     Dates: end: 20181101

REACTIONS (10)
  - Nasopharyngitis [Unknown]
  - Neoplasm progression [Unknown]
  - Dyspnoea [Unknown]
  - Ureteric obstruction [Unknown]
  - Product use in unapproved indication [Unknown]
  - Haemangioma [Unknown]
  - Chest pain [Unknown]
  - Joint swelling [Unknown]
  - Hypotension [Unknown]
  - Fatigue [Recovering/Resolving]
